FAERS Safety Report 23066865 (Version 3)
Quarter: 2023Q4

REPORT INFORMATION
  Report Type: Report from Study
  Country: DE (occurrence: DE)
  Receive Date: 20231016
  Receipt Date: 20231123
  Transmission Date: 20240110
  Serious: Yes (Hospitalization)
  Sender: FDA-Public Use
  Company Number: DE-TAKEDA-2023TUS098750

PATIENT
  Age: 6 Year
  Sex: Female

DRUGS (9)
  1. TEDUGLUTIDE [Suspect]
     Active Substance: TEDUGLUTIDE
     Indication: Short-bowel syndrome
     Dosage: 0.75 MILLIGRAM, QD
     Route: 042
     Dates: start: 20220907
  2. TEDUGLUTIDE [Suspect]
     Active Substance: TEDUGLUTIDE
     Indication: Short-bowel syndrome
     Dosage: 0.75 MILLIGRAM, QD
     Route: 042
     Dates: start: 20220907
  3. TEDUGLUTIDE [Suspect]
     Active Substance: TEDUGLUTIDE
     Indication: Short-bowel syndrome
     Dosage: 0.75 MILLIGRAM, QD
     Route: 042
     Dates: start: 20220907
  4. TEDUGLUTIDE [Suspect]
     Active Substance: TEDUGLUTIDE
     Indication: Short-bowel syndrome
     Dosage: 0.75 MILLIGRAM, QD
     Route: 042
     Dates: start: 20220907
  5. FERINJECT [Concomitant]
     Active Substance: FERRIC CARBOXYMALTOSE
     Indication: Iron deficiency
     Dosage: 200 MILLIGRAM, QD
     Route: 042
     Dates: start: 20230320, end: 20230320
  6. FERINJECT [Concomitant]
     Active Substance: FERRIC CARBOXYMALTOSE
     Dosage: 200 MILLIGRAM, QD
     Route: 042
     Dates: start: 20230925, end: 20230925
  7. FERINJECT [Concomitant]
     Active Substance: FERRIC CARBOXYMALTOSE
     Dosage: 270.00 MILLIGRAM
     Route: 042
     Dates: start: 20231026, end: 20231026
  8. INFLIXIMAB [Concomitant]
     Active Substance: INFLIXIMAB
     Indication: Abdominal mass
     Dosage: 200 MILLIGRAM, MONTHLY
     Route: 042
     Dates: start: 20230802
  9. AMOXICILLIN\CLAVULANATE POTASSIUM [Concomitant]
     Active Substance: AMOXICILLIN\CLAVULANATE POTASSIUM
     Indication: Gastrointestinal motility disorder
     Dosage: 250 MILLIGRAM, TID
     Route: 048
     Dates: start: 20230719, end: 20230723

REACTIONS (3)
  - Complication associated with device [Recovered/Resolved]
  - Catheter site granuloma [Recovered/Resolved]
  - Device related infection [Recovered/Resolved]

NARRATIVE: CASE EVENT DATE: 20231006
